FAERS Safety Report 16395498 (Version 1)
Quarter: 2019Q2

REPORT INFORMATION
  Report Type: Spontaneous
  Country: CA (occurrence: CA)
  Receive Date: 20190605
  Receipt Date: 20190605
  Transmission Date: 20190711
  Serious: Yes (Death)
  Sender: FDA-Public Use
  Company Number: CA-PFIZER INC-2018407830

PATIENT
  Age: 77 Year
  Sex: Female
  Weight: 59.4 kg

DRUGS (1)
  1. BESPONSA [Suspect]
     Active Substance: INOTUZUMAB OZOGAMICIN
     Indication: B-CELL TYPE ACUTE LEUKAEMIA
     Dosage: 0.5 MG/M2 (0.8 MG), CYCLIC (DOSE 1, 8, 15)
     Route: 042
     Dates: start: 20181123, end: 201903

REACTIONS (4)
  - Asthenia [Unknown]
  - Product use in unapproved indication [Unknown]
  - Neoplasm progression [Unknown]
  - Death [Fatal]
